FAERS Safety Report 18402582 (Version 6)
Quarter: 2021Q3

REPORT INFORMATION
  Report Type: Spontaneous
  Country: IN (occurrence: IN)
  Receive Date: 20201020
  Receipt Date: 20210702
  Transmission Date: 20211014
  Serious: No
  Sender: FDA-Public Use
  Company Number: IN-PFIZER INC-2020284485

PATIENT
  Age: 59 Year
  Sex: Female

DRUGS (2)
  1. CRIZALK [Suspect]
     Active Substance: CRIZOTINIB
     Dosage: 250 MG, 2X/DAY (250 MG 12 HOURLY, (2 HOURS AFTER MEAL))
  2. CRIZALK [Suspect]
     Active Substance: CRIZOTINIB
     Indication: NON-SMALL CELL LUNG CANCER
     Dosage: 250 MG, 2X/DAY
     Route: 048
     Dates: start: 20170109, end: 201709

REACTIONS (10)
  - Blood iron decreased [Unknown]
  - Haemoglobin decreased [Unknown]
  - Blood calcium decreased [Unknown]
  - Weight decreased [Unknown]
  - Neoplasm progression [Unknown]
  - Protein total decreased [Unknown]
  - Flatulence [Unknown]
  - Oedema peripheral [Unknown]
  - Fatigue [Unknown]
  - Glycosylated haemoglobin increased [Unknown]

NARRATIVE: CASE EVENT DATE: 201709
